FAERS Safety Report 11583336 (Version 1)
Quarter: 2015Q3

REPORT INFORMATION
  Report Type: Spontaneous
  Country: US (occurrence: None)
  Receive Date: 20150930
  Receipt Date: 20150930
  Transmission Date: 20151125
  Serious: Yes (Other)
  Sender: FDA-Public Use
  Company Number: None

PATIENT
  Age: 52 Year
  Sex: Female

DRUGS (1)
  1. HUMIRA [Suspect]
     Active Substance: ADALIMUMAB
     Indication: CROHN^S DISEASE
     Dosage: EVERY 2 WKS?A LONG TIME PER PATIENT
     Route: 058

REACTIONS (3)
  - Pain of skin [None]
  - Pain in extremity [None]
  - Melanocytic naevus [None]

NARRATIVE: CASE EVENT DATE: 20150901
